FAERS Safety Report 9528109 (Version 3)
Quarter: 2013Q3

REPORT INFORMATION
  Report Type: Spontaneous
  Country: FR (occurrence: FR)
  Receive Date: 20130917
  Receipt Date: 20130925
  Transmission Date: 20140515
  Serious: Yes (Other)
  Sender: FDA-Public Use
  Company Number: FR-JNJFOC-20130904633

PATIENT
  Sex: Male

DRUGS (4)
  1. XARELTO [Suspect]
     Indication: ATRIAL FIBRILLATION
     Route: 048
     Dates: start: 201304
  2. XARELTO [Suspect]
     Indication: CEREBROVASCULAR ACCIDENT PROPHYLAXIS
     Route: 048
     Dates: start: 201304
  3. PREVISCAN (FLUINDIONE) [Concomitant]
     Route: 065
  4. PREVISCAN (FLUINDIONE) [Concomitant]
     Route: 065
     Dates: end: 201304

REACTIONS (1)
  - Traumatic haemothorax [Unknown]
